FAERS Safety Report 21567620 (Version 1)
Quarter: 2022Q4

REPORT INFORMATION
  Report Type: Spontaneous
  Country: US (occurrence: None)
  Receive Date: 20221108
  Receipt Date: 20221108
  Transmission Date: 20230113
  Serious: Yes (Other)
  Sender: FDA-Public Use
  Company Number: None

PATIENT
  Age: 61 Year
  Sex: Female

DRUGS (1)
  1. BEBTELOVIMAB [Suspect]
     Active Substance: BEBTELOVIMAB

REACTIONS (5)
  - Dizziness [None]
  - Nausea [None]
  - Back pain [None]
  - Chills [None]
  - Injection related reaction [None]

NARRATIVE: CASE EVENT DATE: 20220704
